FAERS Safety Report 6754287-0 (Version None)
Quarter: 2010Q2

REPORT INFORMATION
  Report Type: 
  Country: None (occurrence: None)
  Receive Date: 20100603
  Receipt Date: 20100601
  Transmission Date: 20101027
  Serious: Yes (Death, Hospitalization, Other)
  Sender: FDA-Public Use
  Company Number: US-MERCK-0712USA02220

PATIENT
  Age: 82 Year
  Sex: Female

DRUGS (10)
  1. FOSAMAX [Suspect]
     Indication: OSTEOPOROSIS
     Route: 048
     Dates: start: 20010417
  2. FOSAMAX [Suspect]
     Route: 048
     Dates: end: 20010101
  3. FOSAMAX [Suspect]
     Route: 048
     Dates: end: 20030101
  4. FOSAMAX [Suspect]
     Indication: SCOLIOSIS
     Route: 048
     Dates: start: 20010417
  5. FOSAMAX [Suspect]
     Route: 048
     Dates: end: 20010101
  6. FOSAMAX [Suspect]
     Route: 048
     Dates: end: 20030101
  7. FOSAMAX PLUS D [Suspect]
     Route: 065
  8. AMITRIPTYLINE HCL [Concomitant]
     Route: 065
     Dates: start: 19950101, end: 20050101
  9. CARISOPRODOL [Concomitant]
     Route: 065
     Dates: start: 20010101, end: 20060101
  10. SYNTHROID [Concomitant]
     Route: 065
     Dates: start: 20000101

REACTIONS (41)
  - ABNORMAL LOSS OF WEIGHT [None]
  - ABSCESS JAW [None]
  - ACTINIC KERATOSIS [None]
  - ADVERSE DRUG REACTION [None]
  - ANAEMIA [None]
  - ATRIAL FIBRILLATION [None]
  - BACK PAIN [None]
  - CANDIDIASIS [None]
  - CARDIAC FAILURE CONGESTIVE [None]
  - CAROTID ARTERY DISEASE [None]
  - DECREASED APPETITE [None]
  - DIARRHOEA [None]
  - EAR ABRASION [None]
  - ESSENTIAL HYPERTENSION [None]
  - FALL [None]
  - FATIGUE [None]
  - GINGIVITIS [None]
  - HEADACHE [None]
  - HYPERCHOLESTEROLAEMIA [None]
  - HYPERTENSION [None]
  - HYPOTHYROIDISM [None]
  - IMMUNOSUPPRESSION [None]
  - IMPAIRED HEALING [None]
  - INFECTION [None]
  - INSOMNIA [None]
  - JOINT SWELLING [None]
  - LYMPH NODE ABSCESS [None]
  - LYMPHADENITIS [None]
  - LYMPHANGITIS [None]
  - MACULAR DEGENERATION [None]
  - MALAISE [None]
  - OSTEOARTHRITIS [None]
  - OSTEOMYELITIS [None]
  - OSTEONECROSIS OF JAW [None]
  - SPINAL COMPRESSION FRACTURE [None]
  - SYNCOPE [None]
  - THROAT IRRITATION [None]
  - TRANSIENT ISCHAEMIC ATTACK [None]
  - ULCER [None]
  - VISION BLURRED [None]
  - WEIGHT DECREASED [None]
